FAERS Safety Report 20525448 (Version 2)
Quarter: 2022Q1

REPORT INFORMATION
  Report Type: Spontaneous
  Country: US (occurrence: US)
  Receive Date: 20220228
  Receipt Date: 20220309
  Transmission Date: 20220423
  Serious: No
  Sender: FDA-Public Use
  Company Number: US-KARYOPHARM-2022KPT000179

PATIENT

DRUGS (19)
  1. XPOVIO [Suspect]
     Active Substance: SELINEXOR
     Indication: Plasma cell myeloma
     Dosage: 100 MG, WEEKLY
     Route: 048
     Dates: start: 202201, end: 2022
  2. DEXAMETHASONE [Concomitant]
     Active Substance: DEXAMETHASONE
  3. ATORVASTATIN [Concomitant]
     Active Substance: ATORVASTATIN
  4. TRAMADOL [Concomitant]
     Active Substance: TRAMADOL
  5. PANTOPRAZOLE [Concomitant]
     Active Substance: PANTOPRAZOLE
  6. LISINOPRIL [Concomitant]
     Active Substance: LISINOPRIL
  7. METRONIDAZOLE [Concomitant]
     Active Substance: METRONIDAZOLE
  8. TETRACYCLINE [Concomitant]
     Active Substance: TETRACYCLINE
  9. METHOCARBAMOL [Concomitant]
     Active Substance: METHOCARBAMOL
  10. ENOXAPARIN [Concomitant]
     Active Substance: ENOXAPARIN
  11. BACLOFEN [Concomitant]
     Active Substance: BACLOFEN
  12. ENTECAVIR [Concomitant]
     Active Substance: ENTECAVIR
  13. SUCRALFATE [Concomitant]
     Active Substance: SUCRALFATE
  14. ACYCLOVIR [Concomitant]
     Active Substance: ACYCLOVIR
  15. GABAPENTIN [Concomitant]
     Active Substance: GABAPENTIN
  16. DORZOLAMIDE\TIMOLOL [Concomitant]
     Active Substance: DORZOLAMIDE\TIMOLOL
  17. VARUBI [ROLAPITANT] [Concomitant]
  18. OLANZAPINE [Concomitant]
     Active Substance: OLANZAPINE
  19. ONDANSETRON [Concomitant]
     Active Substance: ONDANSETRON

REACTIONS (4)
  - Ageusia [Unknown]
  - Decreased appetite [Unknown]
  - Weight decreased [Unknown]
  - Therapeutic product effect decreased [Unknown]

NARRATIVE: CASE EVENT DATE: 20220201
